FAERS Safety Report 24279456 (Version 1)
Quarter: 2024Q3

REPORT INFORMATION
  Report Type: Report from Study
  Country: US (occurrence: US)
  Receive Date: 20240903
  Receipt Date: 20240903
  Transmission Date: 20241016
  Serious: Yes (Other)
  Sender: ABBVIE
  Company Number: US-ABBVIE-5899352

PATIENT
  Sex: Male

DRUGS (1)
  1. HUMIRA [Suspect]
     Active Substance: ADALIMUMAB
     Indication: Product used for unknown indication
     Route: 058
     Dates: start: 20070815

REACTIONS (10)
  - Retinal detachment [Recovering/Resolving]
  - Vital functions abnormal [Not Recovered/Not Resolved]
  - Eye infection [Unknown]
  - Ocular cyst [Not Recovered/Not Resolved]
  - Eyelid boil [Not Recovered/Not Resolved]
  - Heart rate increased [Unknown]
  - Haematochezia [Not Recovered/Not Resolved]
  - Decreased appetite [Not Recovered/Not Resolved]
  - Asthenia [Not Recovered/Not Resolved]
  - Furuncle [Not Recovered/Not Resolved]

NARRATIVE: CASE EVENT DATE: 20110101
